FAERS Safety Report 26045951 (Version 1)
Quarter: 2025Q4

REPORT INFORMATION
  Report Type: Spontaneous
  Country: AU (occurrence: AU)
  Receive Date: 20251114
  Receipt Date: 20251114
  Transmission Date: 20260117
  Serious: Yes (Hospitalization, Other)
  Sender: RANBAXY
  Company Number: AU-SUN PHARMACEUTICAL INDUSTRIES LTD-2025R1-536047

PATIENT
  Age: 74 Year
  Sex: Female

DRUGS (13)
  1. LENALIDOMIDE [Suspect]
     Active Substance: LENALIDOMIDE
     Indication: Plasma cell myeloma
     Dosage: 25 MILLIGRAM, INTERVAL: 1 DAY
     Route: 048
     Dates: start: 20250818
  2. DEXAMETHASONE [Suspect]
     Active Substance: DEXAMETHASONE
     Indication: Plasma cell myeloma
     Dosage: 40 MILLIGRAM, INTERVAL: 1 WEEK
     Route: 048
     Dates: start: 20250818
  3. DARATUMUMAB [Suspect]
     Active Substance: DARATUMUMAB
     Indication: Plasma cell myeloma
     Dosage: 1800 MILLIGRAM, INTERVAL: 1 WEEK;
     Route: 058
     Dates: start: 20250818
  4. BACTRIM DS [Concomitant]
     Active Substance: SULFAMETHOXAZOLE\TRIMETHOPRIM
     Indication: Antifungal prophylaxis
     Dosage: 160 MILLIGRAM, INTERVAL: 2 DAY
     Route: 048
     Dates: start: 20250818
  5. ALLOPURINOL [Concomitant]
     Active Substance: ALLOPURINOL
     Indication: Metabolic disorder prophylaxis
     Dosage: 300 MILLIGRAM, INTERVAL: 1 DAY
     Route: 048
     Dates: start: 20250818, end: 20250831
  6. DENOSUMAB [Concomitant]
     Active Substance: DENOSUMAB
     Indication: Osteoporosis
     Dosage: 60 MILLIGRAM
     Route: 058
     Dates: start: 2018
  7. DEXAMETHASONE [Concomitant]
     Active Substance: DEXAMETHASONE
     Indication: Steroid therapy
     Dosage: UNK 40 MILLIGRAM; INTERVAL: 1 DAY
     Route: 048
     Dates: start: 20250814, end: 20250817
  8. LATANOPROST [Concomitant]
     Active Substance: LATANOPROST
     Indication: Glaucoma
     Dosage: UNK INTERVAL: 1 DAY
     Route: 047
     Dates: start: 2015
  9. LORATADINE [Concomitant]
     Active Substance: LORATADINE
     Indication: Premedication
     Dosage: 10 MILLIGRAM
     Route: 048
     Dates: start: 20250818
  10. ACETAMINOPHEN [Concomitant]
     Active Substance: ACETAMINOPHEN
     Indication: Premedication
     Dosage: 1000 MILLIGRAM
     Route: 048
     Dates: start: 20250818
  11. RIVAROXABAN [Concomitant]
     Active Substance: RIVAROXABAN
     Indication: Pulmonary embolism
     Dosage: UNK 10 MILLIGRAM; INTERVAL: 1 DAY
     Route: 048
     Dates: start: 2023
  12. RIVAROXABAN [Concomitant]
     Active Substance: RIVAROXABAN
     Indication: Deep vein thrombosis
  13. TIMOLOL MALEATE [Concomitant]
     Active Substance: TIMOLOL MALEATE
     Indication: Glaucoma
     Dosage: UNK, INTERVAL: 12 HOUR
     Route: 047
     Dates: start: 202503

REACTIONS (2)
  - Dehydration [Recovered/Resolved]
  - Syncope [Recovered/Resolved]

NARRATIVE: CASE EVENT DATE: 20250824
